FAERS Safety Report 8501562-5 (Version None)
Quarter: 2012Q3

REPORT INFORMATION
  Report Type: 
  Country: None (occurrence: None)
  Receive Date: 20120710
  Receipt Date: 20120625
  Transmission Date: 20120928
  Serious: Yes (Other)
  Sender: FDA-Public Use
  Company Number: CHPA2012US014039

PATIENT
  Age: 74 Year
  Sex: Male

DRUGS (3)
  1. EXCEDRIN (MIGRAINE) [Suspect]
     Dosage: UNK, UNK
  2. EXCEDRIN EXTRA STRENGTH TABLETS [Suspect]
     Dosage: 1 TO 2 DF, PER DAY, PRN
     Route: 048
  3. EXCEDRIN EXTRA STRENGTH TABLETS [Suspect]
     Indication: PAIN
     Dosage: 1 TO 2 DF, PER DAY, PRN
     Route: 048

REACTIONS (2)
  - TOOTH INJURY [None]
  - HEADACHE [None]
